FAERS Safety Report 5163642-4 (Version None)
Quarter: 2006Q4

REPORT INFORMATION
  Report Type: 
  Country: None (occurrence: None)
  Receive Date: 20061124
  Receipt Date: 20061109
  Transmission Date: 20070319
  Serious: Yes (Death)
  Sender: FDA-Public Use
  Company Number: 2006139916

PATIENT
  Age: 38 Year

DRUGS (4)
  1. SERTRALINE [Suspect]
  2. ACETAMINOPHEN AND OXYCODONE HCL [Suspect]
  3. BELLADONNA AND PHENOBARBITONE (BELLADONNA EXTRACT, PHENOBARBITAL) [Suspect]
  4. ALL OTHER THERAPEUTIC PRODUCTS (ALL OTHER THERAPEUTIC PRODUCTS) [Suspect]

REACTIONS (2)
  - INTENTIONAL DRUG MISUSE [None]
  - SUBSTANCE ABUSE [None]
